FAERS Safety Report 6020198-1 (Version None)
Quarter: 2008Q4

REPORT INFORMATION
  Report Type: 
  Country: None (occurrence: None)
  Receive Date: 20081223
  Receipt Date: 20081223
  Transmission Date: 20090506
  Serious: No
  Sender: FDA-Public Use
  Company Number: None

PATIENT

DRUGS (2)
  1. FENTANYL [Suspect]
     Dosage: 100 MCG IV BOLUS
     Route: 040
  2. MIDAZOLAM CARPUJECT 2MG/2ML 00409-2306-62 [Suspect]
     Dosage: 2 MG IV BOLUS
     Route: 040

REACTIONS (2)
  - DRUG DISPENSING ERROR [None]
  - MEDICATION ERROR [None]
